FAERS Safety Report 5140800-6 (Version None)
Quarter: 2006Q4

REPORT INFORMATION
  Report Type: 
  Country: None (occurrence: None)
  Receive Date: 20061026
  Receipt Date: 20061016
  Transmission Date: 20070319
  Serious: Yes (Life-Threatening, Hospitalization, Disabling)
  Sender: FDA-Public Use
  Company Number: UKP06000242

PATIENT
  Age: 78 Year
  Sex: Female
  Weight: 52 kg

DRUGS (6)
  1. ASACOL [Suspect]
     Indication: COLITIS ULCERATIVE
     Dosage: 800 MG, 3/DAY, ORAL
     Route: 048
  2. LEVOTHYROXINE SODIUM [Concomitant]
  3. PREDNISOLONE [Concomitant]
  4. PROPANOLOL (PROPANOLOL) [Concomitant]
  5. FUROSEMIDE [Concomitant]
  6. ALENDRONIC ACID (ALENDRONIC ACID) [Concomitant]

REACTIONS (1)
  - THALAMUS HAEMORRHAGE [None]
